FAERS Safety Report 9392866 (Version 1)
Quarter: 2013Q3

REPORT INFORMATION
  Report Type: Spontaneous
  Country: US (occurrence: US)
  Receive Date: 20130710
  Receipt Date: 20130710
  Transmission Date: 20140515
  Serious: No
  Sender: FDA-Public Use
  Company Number: US-PFIZER INC-2013200043

PATIENT
  Age: 60 Year
  Sex: Female
  Weight: 88.89 kg

DRUGS (12)
  1. LIPITOR [Suspect]
     Indication: BLOOD CHOLESTEROL INCREASED
     Dosage: 10 MG, DAILY
     Dates: start: 2010
  2. LIPITOR [Suspect]
     Dosage: UNK
     Dates: end: 20130628
  3. QUINIDINE [Suspect]
     Indication: MUSCLE SPASMS
     Dosage: 324 MG, DAILY
  4. NEXIUM [Concomitant]
     Indication: GASTROOESOPHAGEAL REFLUX DISEASE
     Dosage: 40 MG, DAILY
  5. ATENOLOL [Concomitant]
     Indication: HYPERTENSION
     Dosage: 60 MG, DAILY
  6. ALLOPURINOL [Concomitant]
     Indication: GOUT
     Dosage: 100 MG, DAILY
  7. INDOCIN [Concomitant]
     Indication: GOUT
     Dosage: 50 MG, DAILY
  8. GLYBURIDE [Concomitant]
     Indication: DIABETES MELLITUS
     Dosage: 15 MG, 2X/DAY
  9. JANUVIA [Concomitant]
     Indication: DIABETES MELLITUS
     Dosage: 100 MG, DAILY
  10. TYLENOL EXTRA-STRENGTH [Concomitant]
     Indication: ARTHRITIS
     Dosage: UNK, AS NEEDED
  11. ALEVE [Concomitant]
     Indication: ARTHRITIS
     Dosage: UNK, AS NEEDED
  12. COUMADIN [Concomitant]
     Dosage: 5 MG DAILY FROM MONDAY THROUGH FRIDAY AND 4 MG DAILY ON SATURDAY AND SUNDAY, 1X/DAY

REACTIONS (3)
  - Muscle spasms [Unknown]
  - Hypersensitivity [Unknown]
  - Drug ineffective [Unknown]
